FAERS Safety Report 4491829-2 (Version None)
Quarter: 2004Q4

REPORT INFORMATION
  Report Type: 
  Country: None (occurrence: None)
  Receive Date: 20041101
  Receipt Date: 20041014
  Transmission Date: 20050328
  Serious: Yes (Hospitalization, Other)
  Sender: FDA-Public Use
  Company Number: 196810

PATIENT
  Age: 63 Year
  Sex: Female
  Weight: 72.5755 kg

DRUGS (18)
  1. AVONEX [Suspect]
     Indication: MULTIPLE SCLEROSIS
     Dosage: 7.5 MCG QW IM
     Route: 030
     Dates: start: 20021101, end: 20021101
  2. AVONEX [Suspect]
     Indication: MULTIPLE SCLEROSIS
     Dosage: 15 MCG QW IM
     Route: 030
     Dates: start: 20021101, end: 20021101
  3. AVONEX [Suspect]
     Indication: MULTIPLE SCLEROSIS
     Dosage: 22.5 MG QW IM
     Route: 030
     Dates: start: 20021101, end: 20021101
  4. AVONEX [Suspect]
     Indication: MULTIPLE SCLEROSIS
     Dosage: 30 MCG QW IM
     Route: 030
     Dates: start: 20021101, end: 20040301
  5. AVONEX [Suspect]
     Indication: MULTIPLE SCLEROSIS
     Dosage: 30 MCG QW IM
     Route: 030
     Dates: start: 20040401, end: 20040601
  6. AVONEX [Suspect]
     Indication: MULTIPLE SCLEROSIS
     Dosage: 30 MCG QW IM
     Route: 030
     Dates: start: 20040601, end: 20040901
  7. TIZANIDINE HCL [Concomitant]
  8. ZOCOR [Concomitant]
  9. LEXAPRO [Concomitant]
  10. ASPIRIN [Concomitant]
  11. BEXTRA [Concomitant]
  12. NITROQUICK [Concomitant]
  13. PROTONIX [Concomitant]
  14. METOPROLOL SUCCINATE [Concomitant]
  15. TIGAN [Concomitant]
  16. LORTAB [Concomitant]
  17. PROVIGIL [Concomitant]
  18. LIMBITROL [Concomitant]

REACTIONS (18)
  - BACK PAIN [None]
  - CARDIAC FAILURE [None]
  - CARDIAC FAILURE CONGESTIVE [None]
  - CARDIAC VALVE DISEASE [None]
  - COGNITIVE DISORDER [None]
  - CONDITION AGGRAVATED [None]
  - CORONARY ARTERY DISEASE [None]
  - CORONARY ARTERY OCCLUSION [None]
  - COUGH [None]
  - DEPRESSION [None]
  - HAEMOPTYSIS [None]
  - HOARSENESS [None]
  - INFLUENZA LIKE ILLNESS [None]
  - MULTIPLE SCLEROSIS [None]
  - MYOCARDIAL INFARCTION [None]
  - PERICARDIAL EFFUSION [None]
  - PULMONARY OEDEMA [None]
  - RESPIRATORY DISORDER [None]
